FAERS Safety Report 6063891-7 (Version None)
Quarter: 2009Q1

REPORT INFORMATION
  Report Type: 
  Country: None (occurrence: None)
  Receive Date: 20090130
  Receipt Date: 20090119
  Transmission Date: 20090719
  Serious: Yes (Other)
  Sender: FDA-Public Use
  Company Number: 2009AP000271

PATIENT
  Age: 40 Year
  Sex: Female

DRUGS (4)
  1. ZOLPIDEM TARTRATE [Suspect]
     Indication: SLEEP DISORDER
     Dosage: 10 MG, PRN, PO, 20 MG; HS; PO
     Route: 048
     Dates: start: 20090113, end: 20090114
  2. PAROXETINE HCL [Concomitant]
  3. TOPIRAMATE [Concomitant]
  4. VALPROATE SODIUM [Concomitant]

REACTIONS (9)
  - AMNESIA [None]
  - DIZZINESS [None]
  - FALL [None]
  - FEELING DRUNK [None]
  - GAIT DISTURBANCE [None]
  - INCORRECT DOSE ADMINISTERED [None]
  - SLEEP SEX [None]
  - SLEEP TALKING [None]
  - SOMNAMBULISM [None]
